FAERS Safety Report 17498361 (Version 1)
Quarter: 2020Q1

REPORT INFORMATION
  Report Type: Spontaneous
  Country: US (occurrence: US)
  Receive Date: 20200304
  Receipt Date: 20200304
  Transmission Date: 20200409
  Serious: No
  Sender: FDA-Public Use
  Company Number: US-BAUSCH-BL-2020-004901

PATIENT
  Sex: Female

DRUGS (1)
  1. RETIN-A [Suspect]
     Active Substance: TRETINOIN
     Indication: PRODUCT USED FOR UNKNOWN INDICATION
     Dosage: AT BEDTIME, DURATION: ABOUT 3 WEEKS
     Route: 061
     Dates: start: 202001, end: 20200210

REACTIONS (5)
  - Chloasma [Not Recovered/Not Resolved]
  - Dry skin [Not Recovered/Not Resolved]
  - Disease recurrence [Not Recovered/Not Resolved]
  - Skin burning sensation [Not Recovered/Not Resolved]
  - Skin exfoliation [Not Recovered/Not Resolved]

NARRATIVE: CASE EVENT DATE: 2020
